FAERS Safety Report 15307611 (Version 2)
Quarter: 2018Q3

REPORT INFORMATION
  Report Type: Spontaneous
  Country: CO (occurrence: CO)
  Receive Date: 20180822
  Receipt Date: 20180927
  Transmission Date: 20181010
  Serious: Yes (Other)
  Sender: FDA-Public Use
  Company Number: CO-ALLERGAN-1839726US

PATIENT
  Age: 8 Year
  Sex: Female

DRUGS (2)
  1. METFORMIN [Concomitant]
     Active Substance: METFORMIN HYDROCHLORIDE
     Indication: INSULIN RESISTANCE
     Route: 065
  2. TRIPTORELIN PAMOATE ? BP [Suspect]
     Active Substance: TRIPTORELIN PAMOATE
     Indication: PRECOCIOUS PUBERTY
     Dosage: 3.75 MG, EVERY 21 DAYS
     Route: 030
     Dates: start: 2014

REACTIONS (8)
  - Injection site cellulitis [Recovering/Resolving]
  - Off label use [Unknown]
  - Adnexal torsion [Unknown]
  - Drug ineffective [Unknown]
  - Hypersensitivity [Unknown]
  - Insulin resistance [Not Recovered/Not Resolved]
  - Inappropriate schedule of drug administration [Unknown]
  - Ovarian cyst [Not Recovered/Not Resolved]

NARRATIVE: CASE EVENT DATE: 2014
